FAERS Safety Report 24857036 (Version 1)
Quarter: 2025Q1

REPORT INFORMATION
  Report Type: Spontaneous
  Country: JP (occurrence: JP)
  Receive Date: 20250117
  Receipt Date: 20250117
  Transmission Date: 20250408
  Serious: Yes (Other)
  Sender: EMD SERONO INC
  Company Number: JP-Merck Healthcare KGaA-2024045305

PATIENT
  Age: 49 Year
  Sex: Male
  Weight: 100 kg

DRUGS (4)
  1. METGLUCO [Suspect]
     Active Substance: METFORMIN HYDROCHLORIDE
     Indication: Type 2 diabetes mellitus
     Dates: start: 20221201
  2. IMEGLIMIN HYDROCHLORIDE [Suspect]
     Active Substance: IMEGLIMIN HYDROCHLORIDE
     Indication: Type 2 diabetes mellitus
     Dates: start: 20230316, end: 20230615
  3. DAPAGLIFLOZIN [Suspect]
     Active Substance: DAPAGLIFLOZIN
     Indication: Type 2 diabetes mellitus
  4. TRULICITY [Suspect]
     Active Substance: DULAGLUTIDE
     Indication: Type 2 diabetes mellitus
     Dates: start: 20221201, end: 20240418

REACTIONS (11)
  - Nephrocalcinosis [Unknown]
  - Hepatic steatosis [Unknown]
  - Blood triglycerides increased [Unknown]
  - Low density lipoprotein increased [Unknown]
  - High density lipoprotein decreased [Unknown]
  - Hepatic function abnormal [Recovered/Resolved]
  - Blood albumin decreased [Unknown]
  - Blood lactate dehydrogenase increased [Unknown]
  - Blood alkaline phosphatase increased [Unknown]
  - Glycosylated haemoglobin increased [Unknown]
  - Decreased appetite [Unknown]

NARRATIVE: CASE EVENT DATE: 20221201
